FAERS Safety Report 18908494 (Version 1)
Quarter: 2021Q1

REPORT INFORMATION
  Report Type: Spontaneous
  Country: US (occurrence: US)
  Receive Date: 20210218
  Receipt Date: 20210218
  Transmission Date: 20210420
  Serious: Yes (Life-Threatening, Hospitalization, Other)
  Sender: FDA-Public Use
  Company Number: US-HIKMA PHARMACEUTICALS USA INC.-US-H14001-21-53618

PATIENT
  Age: 59 Year
  Sex: Female

DRUGS (13)
  1. OCTREOTIDE. [Suspect]
     Active Substance: OCTREOTIDE
     Route: 065
  2. OCTREOTIDE. [Suspect]
     Active Substance: OCTREOTIDE
     Route: 065
  3. OCTREOTIDE. [Suspect]
     Active Substance: OCTREOTIDE
     Route: 058
  4. OCTREOTIDE. [Suspect]
     Active Substance: OCTREOTIDE
     Route: 065
  5. OCTREOTIDE. [Suspect]
     Active Substance: OCTREOTIDE
     Route: 065
  6. OCTREOTIDE. [Suspect]
     Active Substance: OCTREOTIDE
     Indication: CARCINOID SYNDROME
     Route: 065
  7. VASOPRESSIN. [Suspect]
     Active Substance: VASOPRESSIN
     Indication: CARDIOGENIC SHOCK
     Dosage: UNKNOWN
     Route: 065
  8. DOBUTAMINE [Suspect]
     Active Substance: DOBUTAMINE HYDROCHLORIDE
     Indication: CARDIOGENIC SHOCK
     Dosage: UNKNOWN
     Route: 065
  9. DOXORUBICIN [Concomitant]
     Active Substance: DOXORUBICIN
     Indication: NEUROENDOCRINE TUMOUR
     Dosage: UNKNOWN
     Route: 065
  10. MITOMYCIN. [Concomitant]
     Active Substance: MITOMYCIN
     Indication: NEUROENDOCRINE TUMOUR
     Dosage: UNKNOWN
     Route: 065
  11. OCTREOTIDE. [Suspect]
     Active Substance: OCTREOTIDE
     Route: 065
  12. NITROPRUSSIDE [Concomitant]
     Active Substance: NITROPRUSSIDE
     Indication: CARDIOGENIC SHOCK
     Dosage: UNKNOWN
     Route: 065
  13. MILRINONE [Concomitant]
     Active Substance: MILRINONE
     Indication: CARDIOGENIC SHOCK
     Dosage: UNKNOWN
     Route: 065

REACTIONS (8)
  - Condition aggravated [Recovered/Resolved]
  - Cardiogenic shock [Recovered/Resolved]
  - Vasoconstriction [Recovered/Resolved]
  - Renal failure [Recovered/Resolved]
  - Cardiac failure [Recovered/Resolved]
  - Carcinoid crisis [Recovered/Resolved]
  - Tumour necrosis [Recovered/Resolved]
  - Hypoperfusion [Recovered/Resolved]
